FAERS Safety Report 4922094-7 (Version None)
Quarter: 2006Q1

REPORT INFORMATION
  Report Type: 
  Country: None (occurrence: None)
  Receive Date: 20060222
  Receipt Date: 20060222
  Transmission Date: 20060701
  Serious: Yes (Other)
  Sender: FDA-Public Use
  Company Number: None

PATIENT
  Age: 55 Year
  Sex: Male
  Weight: 73 kg

DRUGS (10)
  1. HALDOL [Suspect]
     Dosage: 5MG  @ 430PM  PO
     Route: 048
     Dates: start: 20051116
  2. LORAZEPAM [Suspect]
     Dosage: 2MG  @ 430PM  PO
     Route: 048
     Dates: start: 20050831, end: 20051116
  3. ALB. INH [Concomitant]
  4. CITALOPRAM [Concomitant]
  5. CLONAZEPAM [Concomitant]
  6. HYDROCHLOROTHIAZIDE [Concomitant]
  7. IPR. INH [Concomitant]
  8. LISINOPRIL [Concomitant]
  9. MOM [Concomitant]
  10. QUETIAPINE [Concomitant]

REACTIONS (7)
  - DYSPNOEA [None]
  - RESPIRATION ABNORMAL [None]
  - RESPIRATORY DISTRESS [None]
  - SNORING [None]
  - SOMNOLENCE [None]
  - STRIDOR [None]
  - WHEEZING [None]
